FAERS Safety Report 17098006 (Version 1)
Quarter: 2019Q4

REPORT INFORMATION
  Report Type: Spontaneous
  Country: US (occurrence: US)
  Receive Date: 20191202
  Receipt Date: 20191202
  Transmission Date: 20200122
  Serious: No
  Sender: FDA-Public Use
  Company Number: US-MYLANLABS-2019M1111203

PATIENT
  Age: 23 Year
  Sex: Female

DRUGS (1)
  1. MEDROXYPROGESTERONE ACETATE INJECTABLE SUSPENSION USP [Suspect]
     Active Substance: MEDROXYPROGESTERONE ACETATE
     Indication: PRODUCT USED FOR UNKNOWN INDICATION
     Dosage: ONCE/3 MONTHS
     Route: 030

REACTIONS (2)
  - Incorrect dose administered [Not Recovered/Not Resolved]
  - Product reconstitution quality issue [Not Recovered/Not Resolved]

NARRATIVE: CASE EVENT DATE: 201908
